FAERS Safety Report 22295246 (Version 1)
Quarter: 2023Q2

REPORT INFORMATION
  Report Type: Spontaneous
  Country: US (occurrence: None)
  Receive Date: 20230506
  Receipt Date: 20230506
  Transmission Date: 20230721
  Serious: Yes (Other)
  Sender: FDA-Public Use
  Company Number: None

PATIENT
  Age: 64 Year
  Sex: Female

DRUGS (1)
  1. AMLODIPINE [Suspect]
     Active Substance: AMLODIPINE BESYLATE
     Dosage: FREQUENCY : DAILY;?
     Route: 048

REACTIONS (5)
  - Product substitution issue [None]
  - Hypertension [None]
  - Heart rate increased [None]
  - Joint swelling [None]
  - Therapeutic response changed [None]

NARRATIVE: CASE EVENT DATE: 20230418
